FAERS Safety Report 4323754-1 (Version None)
Quarter: 2004Q1

REPORT INFORMATION
  Report Type: 
  Country: None (occurrence: None)
  Receive Date: 20040323
  Receipt Date: 20040310
  Transmission Date: 20041129
  Serious: Yes (Other)
  Sender: FDA-Public Use
  Company Number: GB-JNJFOC-20040302601

PATIENT
  Age: 14 Year
  Sex: Male

DRUGS (7)
  1. CONCERTA [Suspect]
     Indication: ATTENTION DEFICIT/HYPERACTIVITY DISORDER
  2. CEFUROXIME [Concomitant]
  3. ONDANSETRON HCL [Concomitant]
  4. ACETAMINOPHEN [Concomitant]
  5. DICLOFENAC SODIUM [Concomitant]
  6. CYCLIZINE (CYCLIZINE) [Concomitant]
  7. CO-CODAMOL (PANADEINE CO) [Concomitant]

REACTIONS (4)
  - ABNORMAL DREAMS [None]
  - HALLUCINATION [None]
  - POST PROCEDURAL COMPLICATION [None]
  - SKIN LACERATION [None]
